FAERS Safety Report 8831299 (Version 3)
Quarter: 2014Q1

REPORT INFORMATION
  Report Type: Report from Study
  Country: JP (occurrence: JP)
  Receive Date: 20121008
  Receipt Date: 20140313
  Transmission Date: 20141002
  Serious: Yes (Other)
  Sender: FDA-Public Use
  Company Number: JP-VERTEX PHARMACEUTICAL INC.-AE-2012-011742

PATIENT
  Age: 71 Year
  Sex: Male

DRUGS (13)
  1. VX-950 (TELAPREVIR) [Suspect]
     Indication: CHRONIC HEPATITIS C
     Dosage: 1500 MG, QD
     Route: 048
     Dates: start: 20120612, end: 20120731
  2. REBETOL [Suspect]
     Indication: CHRONIC HEPATITIS C
     Dosage: 800 MG, QD
     Route: 048
     Dates: start: 20120612, end: 20120716
  3. REBETOL [Suspect]
     Dosage: 600 MG, QD
     Route: 048
     Dates: start: 20120717, end: 20120807
  4. REBETOL [Suspect]
     Dosage: 400 MG, QD
     Route: 048
     Dates: start: 20120904
  5. PEGINTRON [Suspect]
     Indication: CHRONIC HEPATITIS C
     Dosage: 1.5 ?G/KG, QW
     Route: 058
     Dates: start: 20120612, end: 20120628
  6. PEGINTRON [Suspect]
     Dosage: 0.75 ?G/KG, QW
     Route: 058
     Dates: start: 20120703
  7. PEGINTRON [Suspect]
     Dosage: 0.8 ?G/KG, QW
     Route: 058
     Dates: end: 20120807
  8. PEGINTRON [Suspect]
     Dosage: 0.8 ?G/KG, QW
     Route: 058
     Dates: start: 20120828
  9. URSO [Concomitant]
     Dosage: 600 MG, QD
     Route: 048
     Dates: end: 20120717
  10. BAYASPIRIN [Concomitant]
     Dosage: 100 MG, QD
     Route: 048
  11. ACECOL [Concomitant]
     Dosage: 2 MG, QD
     Route: 048
  12. ARTIST [Concomitant]
     Dosage: 10 MG, QD
     Route: 048
  13. SIGMART [Concomitant]
     Dosage: 15 MG, QD
     Route: 048

REACTIONS (3)
  - Erythema multiforme [Recovered/Resolved]
  - Haemoglobin decreased [Recovered/Resolved]
  - Retinopathy [Recovering/Resolving]
